FAERS Safety Report 8166694-2 (Version None)
Quarter: 2012Q1

REPORT INFORMATION
  Report Type: 
  Country: None (occurrence: None)
  Receive Date: 20120227
  Receipt Date: 20120220
  Transmission Date: 20120608
  Serious: Yes (Other)
  Sender: FDA-Public Use
  Company Number: US-ROXANE LABORATORIES, INC.-2012-RO-00682RO

PATIENT
  Age: 43 Year
  Sex: Female

DRUGS (7)
  1. APREPITANT [Suspect]
     Route: 048
  2. DEXAMETHASONE [Suspect]
     Indication: RECALL PHENOMENON
     Route: 042
  3. APREPITANT [Suspect]
     Indication: BREAST CANCER
     Route: 048
  4. DEXAMETHASONE [Suspect]
     Indication: BREAST CANCER
     Dosage: 16 MG
     Route: 048
  5. PALONOSETRON [Suspect]
     Indication: BREAST CANCER
     Route: 042
  6. CYCLOPHOSPHAMIDE [Suspect]
     Indication: BREAST CANCER
  7. DOCETAXEL [Suspect]
     Indication: BREAST CANCER

REACTIONS (1)
  - RECALL PHENOMENON [None]
